FAERS Safety Report 6903774-0 (Version None)
Quarter: 2010Q3

REPORT INFORMATION
  Report Type: 
  Country: None (occurrence: None)
  Receive Date: 20100804
  Receipt Date: 20081211
  Transmission Date: 20110219
  Serious: Yes (Other)
  Sender: FDA-Public Use
  Company Number: US-PFIZER INC-2008152697

PATIENT
  Sex: Female

DRUGS (10)
  1. LYRICA [Suspect]
     Dosage: UNK
  2. AMBIEN [Suspect]
     Indication: INITIAL INSOMNIA
     Dosage: 6.25 MG, UNK
     Route: 048
     Dates: start: 20080701
  3. AMBIEN [Suspect]
     Indication: INSOMNIA
  4. MIRAPEX [Concomitant]
  5. TEMAZEPAM [Concomitant]
  6. KLONOPIN [Concomitant]
  7. ATENOLOL [Concomitant]
  8. CARBIDOPA [Concomitant]
  9. SEROQUEL [Concomitant]
  10. HYDROXYZINE [Concomitant]

REACTIONS (2)
  - ABDOMINAL PAIN UPPER [None]
  - SUICIDAL IDEATION [None]
